FAERS Safety Report 18420594 (Version 3)
Quarter: 2020Q4

REPORT INFORMATION
  Report Type: Report from Study
  Country: US (occurrence: US)
  Receive Date: 20201023
  Receipt Date: 20201230
  Transmission Date: 20210114
  Serious: Yes (Other)
  Sender: FDA-Public Use
  Company Number: US-GILEAD-2020-0500627

PATIENT
  Age: 80 Year
  Sex: Female
  Weight: 46.71 kg

DRUGS (7)
  1. TADALAFIL. [Concomitant]
     Active Substance: TADALAFIL
  2. AMLODIPINE [Concomitant]
     Active Substance: AMLODIPINE BESYLATE
  3. ATORVASTATIN [Concomitant]
     Active Substance: ATORVASTATIN
  4. AMBRISENTAN [Suspect]
     Active Substance: AMBRISENTAN
     Indication: PULMONARY HYPERTENSION
     Dosage: 5 MG, QD
     Route: 048
     Dates: start: 20200928
  5. CLOPIDOGREL [Concomitant]
     Active Substance: CLOPIDOGREL BISULFATE
  6. PROTONIX [OMEPRAZOLE] [Concomitant]
     Active Substance: OMEPRAZOLE
  7. ANORO [Concomitant]
     Active Substance: UMECLIDINIUM BROMIDE\VILANTEROL TRIFENATATE

REACTIONS (10)
  - Throat cancer [Unknown]
  - Decreased appetite [Not Recovered/Not Resolved]
  - Ocular hyperaemia [Recovered/Resolved]
  - Night sweats [Unknown]
  - Peripheral swelling [Unknown]
  - Transient ischaemic attack [Unknown]
  - Ageusia [Not Recovered/Not Resolved]
  - Dyspepsia [Not Recovered/Not Resolved]
  - Hot flush [Unknown]
  - Flushing [Unknown]

NARRATIVE: CASE EVENT DATE: 20201217
